FAERS Safety Report 12486488 (Version 3)
Quarter: 2016Q3

REPORT INFORMATION
  Report Type: Spontaneous
  Country: DE (occurrence: DE)
  Receive Date: 20160621
  Receipt Date: 20160727
  Transmission Date: 20161109
  Serious: Yes (Hospitalization)
  Sender: FDA-Public Use
  Company Number: PHHY2016DE084145

PATIENT
  Sex: Female

DRUGS (1)
  1. CERTICAN [Suspect]
     Active Substance: EVEROLIMUS
     Indication: LUNG TRANSPLANT
     Dosage: UNK
     Route: 048
     Dates: start: 20140702

REACTIONS (5)
  - Thrombosis [Recovered/Resolved]
  - Asthenia [Unknown]
  - Pulmonary embolism [Recovered/Resolved]
  - Pneumonia [Recovered/Resolved]
  - Abdominal neoplasm [Unknown]

NARRATIVE: CASE EVENT DATE: 20160523
